FAERS Safety Report 11977672 (Version 2)
Quarter: 2016Q1

REPORT INFORMATION
  Report Type: Report from Study
  Country: GB (occurrence: GB)
  Receive Date: 20160129
  Receipt Date: 20160212
  Transmission Date: 20160526
  Serious: Yes (Death)
  Sender: FDA-Public Use
  Company Number: GB-BAXTER-2016BAX004371

PATIENT

DRUGS (21)
  1. VINCRISTINE [Suspect]
     Active Substance: VINCRISTINE
     Indication: BURKITT^S LYMPHOMA
     Route: 065
  2. ETOPOSIDE. [Suspect]
     Active Substance: ETOPOSIDE
     Indication: HIV INFECTION
  3. VINCRISTINE [Suspect]
     Active Substance: VINCRISTINE
     Indication: HIV INFECTION
  4. VINCRISTINE [Suspect]
     Active Substance: VINCRISTINE
     Indication: METASTASIS
  5. CYTARABINE. [Suspect]
     Active Substance: CYTARABINE
     Indication: BURKITT^S LYMPHOMA
     Route: 065
  6. ETOPOSIDE. [Suspect]
     Active Substance: ETOPOSIDE
     Indication: METASTASIS
  7. IFOSFAMIDE INJECTION 2G [Suspect]
     Active Substance: IFOSFAMIDE
     Indication: BURKITT^S LYMPHOMA
     Route: 065
  8. METHOTREXATE [Suspect]
     Active Substance: METHOTREXATE
     Indication: METASTASIS
  9. CYCLOPHOSPHAMIDE INJECTION 1G [Suspect]
     Active Substance: CYCLOPHOSPHAMIDE
     Indication: BURKITT^S LYMPHOMA
     Route: 065
  10. CYCLOPHOSPHAMIDE INJECTION 1G [Suspect]
     Active Substance: CYCLOPHOSPHAMIDE
     Indication: METASTASIS
  11. DOXORUBICIN [Suspect]
     Active Substance: DOXORUBICIN
     Indication: BURKITT^S LYMPHOMA
     Route: 065
  12. CYTARABINE. [Suspect]
     Active Substance: CYTARABINE
     Indication: HIV INFECTION
  13. CYTARABINE. [Suspect]
     Active Substance: CYTARABINE
     Indication: METASTASIS
  14. IFOSFAMIDE INJECTION 2G [Suspect]
     Active Substance: IFOSFAMIDE
     Indication: HIV INFECTION
  15. METHOTREXATE [Suspect]
     Active Substance: METHOTREXATE
     Indication: BURKITT^S LYMPHOMA
     Route: 065
  16. IFOSFAMIDE INJECTION 2G [Suspect]
     Active Substance: IFOSFAMIDE
     Indication: METASTASIS
  17. DOXORUBICIN [Suspect]
     Active Substance: DOXORUBICIN
     Indication: METASTASIS
  18. METHOTREXATE [Suspect]
     Active Substance: METHOTREXATE
     Indication: HIV INFECTION
  19. CYCLOPHOSPHAMIDE INJECTION 1G [Suspect]
     Active Substance: CYCLOPHOSPHAMIDE
     Indication: HIV INFECTION
  20. DOXORUBICIN [Suspect]
     Active Substance: DOXORUBICIN
     Indication: HIV INFECTION
  21. ETOPOSIDE. [Suspect]
     Active Substance: ETOPOSIDE
     Indication: BURKITT^S LYMPHOMA
     Route: 065

REACTIONS (1)
  - Disease progression [Fatal]
